FAERS Safety Report 13268101 (Version 9)
Quarter: 2018Q3

REPORT INFORMATION
  Report Type: Report from Study
  Country: US (occurrence: US)
  Receive Date: 20170224
  Receipt Date: 20180814
  Transmission Date: 20181010
  Serious: Yes (Hospitalization, Other)
  Sender: FDA-Public Use
  Company Number: PHHY2016US182922

PATIENT

DRUGS (43)
  1. TOBI PODHALER [Suspect]
     Active Substance: TOBRAMYCIN
     Indication: PSEUDOMONAS INFECTION
     Dosage: 2 DF (112), QD
     Route: 055
     Dates: start: 20161210, end: 20161221
  2. TOBI PODHALER [Suspect]
     Active Substance: TOBRAMYCIN
     Dosage: 2 DF(112), UNK
     Route: 055
     Dates: start: 20180207, end: 20180214
  3. CAYSTON [Suspect]
     Active Substance: AZTREONAM
     Dosage: 3 DF (75), QD
     Route: 065
     Dates: start: 20170714, end: 20170811
  4. CAYSTON [Suspect]
     Active Substance: AZTREONAM
     Dosage: 3 DF (75), QD
     Route: 065
     Dates: start: 20180124, end: 20180207
  5. CAYSTON [Suspect]
     Active Substance: AZTREONAM
     Dosage: 3 DF (75), QD
     Route: 065
     Dates: start: 20160328, end: 20160331
  6. CAYSTON [Suspect]
     Active Substance: AZTREONAM
     Dosage: 3 DF (75), QD
     Route: 065
     Dates: start: 20161111, end: 20161209
  7. CAYSTON [Suspect]
     Active Substance: AZTREONAM
     Dosage: 3 DF (75), QD
     Route: 065
     Dates: start: 20161221, end: 20170104
  8. LIDOCAINE. [Concomitant]
     Active Substance: LIDOCAINE
     Indication: PAIN
     Dosage: UNK
     Route: 065
     Dates: start: 20160524, end: 20160524
  9. TOBI [Suspect]
     Active Substance: TOBRAMYCIN
     Dosage: 2 DF (300), QD
     Route: 055
     Dates: start: 20160505, end: 20160517
  10. TPN [Concomitant]
     Active Substance: AMINO ACIDS\DEXTROSE\ELECTROLYTES NOS\SOYBEAN OIL
     Indication: SUPPLEMENTATION THERAPY
     Dosage: UNK
     Route: 065
     Dates: start: 20160524, end: 20160524
  11. TOBI [Suspect]
     Active Substance: TOBRAMYCIN
     Dosage: 2 DF (300), QD
     Route: 055
     Dates: start: 20160525, end: 20160604
  12. CAYSTON [Suspect]
     Active Substance: AZTREONAM
     Dosage: 3 DF (75), QD
     Route: 065
     Dates: start: 20160630, end: 20160707
  13. CAYSTON [Suspect]
     Active Substance: AZTREONAM
     Dosage: 3 DF (75), QD
     Route: 065
     Dates: start: 20170207, end: 20170307
  14. CAYSTON [Suspect]
     Active Substance: AZTREONAM
     Dosage: 3 DF (75), QD
     Route: 065
     Dates: start: 20170525, end: 20170622
  15. CAYSTON [Suspect]
     Active Substance: AZTREONAM
     Dosage: 3 DF (75), QD
     Route: 065
     Dates: start: 20170824, end: 20170921
  16. TIGECYCLINE. [Concomitant]
     Active Substance: TIGECYCLINE
     Indication: PNEUMONIA
     Dosage: UNK
     Route: 065
     Dates: start: 20160406, end: 20160408
  17. PHENERGAN [Concomitant]
     Active Substance: PROMETHAZINE HYDROCHLORIDE
     Indication: NAUSEA
     Dosage: UNK
     Route: 065
     Dates: start: 20160603
  18. PREDNISONE. [Concomitant]
     Active Substance: PREDNISONE
     Indication: CYSTIC FIBROSIS
     Dosage: UNK
     Route: 065
     Dates: start: 20170308, end: 20170313
  19. TOBRAMYCIN. [Concomitant]
     Active Substance: TOBRAMYCIN
     Indication: CYSTIC FIBROSIS LUNG
     Dosage: UNK
     Route: 065
     Dates: start: 20180214
  20. TOBI PODHALER [Suspect]
     Active Substance: TOBRAMYCIN
     Dosage: 2 DF (112), QD
     Route: 055
     Dates: start: 20170106, end: 20170206
  21. CAYSTON [Suspect]
     Active Substance: AZTREONAM
     Dosage: 3 DF (75), QD
     Route: 065
     Dates: start: 20160909, end: 20161012
  22. TOBRAMYCIN. [Concomitant]
     Active Substance: TOBRAMYCIN
     Dosage: UNK
     Route: 065
     Dates: start: 20170104, end: 20170105
  23. TOBI [Suspect]
     Active Substance: TOBRAMYCIN
     Indication: PSEUDOMONAS INFECTION
     Dosage: 2 DF (300), QD
     Route: 055
     Dates: start: 20160305, end: 20160327
  24. CAYSTON [Suspect]
     Active Substance: AZTREONAM
     Dosage: 3 DF (75), QD
     Route: 065
     Dates: start: 20171019, end: 20171116
  25. VERSED [Concomitant]
     Active Substance: MIDAZOLAM HYDROCHLORIDE
     Indication: CENTRAL VENOUS CATHETERISATION
     Dosage: UNK
     Route: 065
     Dates: start: 20160401, end: 20160401
  26. SEPTRA [Concomitant]
     Active Substance: SULFAMETHOXAZOLE\TRIMETHOPRIM
     Dosage: UNK
     Route: 065
     Dates: start: 20160728, end: 20160907
  27. TOBI [Suspect]
     Active Substance: TOBRAMYCIN
     Dosage: 2 DF (300), QD
     Route: 055
     Dates: start: 20160728, end: 20160825
  28. TOBI PODHALER [Suspect]
     Active Substance: TOBRAMYCIN
     Indication: CYSTIC FIBROSIS
     Dosage: 2 DF (112), QD
     Route: 055
     Dates: start: 20161013, end: 20161110
  29. TOBI PODHALER [Suspect]
     Active Substance: TOBRAMYCIN
     Dosage: 2 DF (112), QD
     Route: 055
     Dates: start: 20170308, end: 20170327
  30. TOBI PODHALER [Suspect]
     Active Substance: TOBRAMYCIN
     Dosage: 2 DF(112), UNK
     Route: 055
     Dates: start: 20170623, end: 20170712
  31. CAYSTON [Suspect]
     Active Substance: AZTREONAM
     Dosage: 3 DF (75), QD
     Route: 065
     Dates: start: 20160828, end: 20160907
  32. CIPRO [Concomitant]
     Active Substance: CIPROFLOXACIN HYDROCHLORIDE
     Indication: BRONCHITIS
     Dosage: UNK
     Route: 065
     Dates: start: 20160225, end: 20160310
  33. SEPTRA [Concomitant]
     Active Substance: SULFAMETHOXAZOLE\TRIMETHOPRIM
     Indication: INFECTIVE PULMONARY EXACERBATION OF CYSTIC FIBROSIS
     Dosage: UNK
     Route: 065
     Dates: start: 20160709, end: 20160804
  34. TOBRAMYCIN. [Concomitant]
     Active Substance: TOBRAMYCIN
     Indication: PSEUDOMONAS INFECTION
     Dosage: UNK
     Route: 065
     Dates: start: 20160622, end: 20160630
  35. TOBI [Suspect]
     Active Substance: TOBRAMYCIN
     Indication: CYSTIC FIBROSIS
     Dosage: 2 DF (300), QD
     Route: 055
     Dates: start: 20160104, end: 20160204
  36. TOBI [Suspect]
     Active Substance: TOBRAMYCIN
     Dosage: 1 DF (300), TID
     Route: 065
     Dates: start: 20170501
  37. CAYSTON [Suspect]
     Active Substance: AZTREONAM
     Indication: PRODUCT USED FOR UNKNOWN INDICATION
     Dosage: 3 DF (75), QD
     Route: 065
     Dates: start: 20160205, end: 20160304
  38. BETHKIS [Suspect]
     Active Substance: TOBRAMYCIN
     Indication: PRODUCT USED FOR UNKNOWN INDICATION
     Dosage: 2 DF (300), QD
     Route: 065
     Dates: start: 20160520, end: 20160525
  39. PRILOSEC [Concomitant]
     Active Substance: OMEPRAZOLE MAGNESIUM
     Indication: CYSTIC FIBROSIS
     Dosage: UNK
     Route: 065
     Dates: start: 20150810
  40. FLEET ENEMA [Concomitant]
     Active Substance: SODIUM PHOSPHATE, DIBASIC\SODIUM PHOSPHATE, MONOBASIC
     Indication: CONSTIPATION
     Dosage: UNK
     Route: 065
     Dates: start: 20160412, end: 20160421
  41. VORICONAZOLE. [Concomitant]
     Active Substance: VORICONAZOLE
     Indication: INFECTIVE PULMONARY EXACERBATION OF CYSTIC FIBROSIS
     Dosage: UNK
     Route: 065
     Dates: start: 20160417, end: 20160421
  42. INFLUENZA VACCINE [Concomitant]
     Active Substance: INFLUENZA VIRUS VACCINE
     Indication: PROPHYLAXIS
     Dosage: UNK
     Route: 065
     Dates: start: 20161001, end: 20161001
  43. LEVAQUIN [Concomitant]
     Active Substance: LEVOFLOXACIN
     Indication: CYSTIC FIBROSIS
     Dosage: UNK
     Route: 065
     Dates: start: 20170308, end: 20170321

REACTIONS (23)
  - Bronchitis [Recovered/Resolved]
  - Infective pulmonary exacerbation of cystic fibrosis [Recovered/Resolved]
  - Fatigue [Unknown]
  - Pancreatitis [Recovered/Resolved]
  - Bronchitis [Recovered/Resolved]
  - Infective pulmonary exacerbation of cystic fibrosis [Recovered/Resolved]
  - Pyrexia [Recovered/Resolved]
  - Pancreatitis [Recovered/Resolved]
  - Cough [Unknown]
  - Pancreatitis [Recovered/Resolved]
  - Cough [Recovered/Resolved]
  - Bronchitis [Recovered/Resolved]
  - Sepsis [Recovered/Resolved]
  - Infective pulmonary exacerbation of cystic fibrosis [Recovered/Resolved]
  - Alanine aminotransferase increased [Recovered/Resolved]
  - Infective pulmonary exacerbation of cystic fibrosis [Recovered/Resolved]
  - Device dislocation [Recovered/Resolved]
  - Haemoptysis [Recovered/Resolved]
  - Alanine aminotransferase increased [Recovered/Resolved]
  - Acne [Unknown]
  - Bronchiectasis [Recovered/Resolved]
  - Bronchopulmonary aspergillosis allergic [Recovered/Resolved]
  - Infective pulmonary exacerbation of cystic fibrosis [Recovered/Resolved]

NARRATIVE: CASE EVENT DATE: 20160123
